FAERS Safety Report 13965848 (Version 2)
Quarter: 2017Q3

REPORT INFORMATION
  Report Type: Spontaneous
  Country: US (occurrence: US)
  Receive Date: 20170913
  Receipt Date: 20170913
  Transmission Date: 20171128
  Serious: Yes (Other)
  Sender: FDA-Public Use
  Company Number: US-UNITED THERAPEUTICS-UNT-2017-013085

PATIENT
  Age: 10 Month
  Sex: Female

DRUGS (2)
  1. REMODULIN [Suspect]
     Active Substance: TREPROSTINIL
     Indication: PULMONARY ARTERIAL HYPERTENSION
     Dosage: 0.079 ?G/KG, CONTINUING
     Route: 058
  2. BOSENTAN. [Concomitant]
     Active Substance: BOSENTAN
     Indication: PULMONARY ARTERIAL HYPERTENSION
     Dosage: 2 MG/KG, BID

REACTIONS (4)
  - Aortic thrombosis [Unknown]
  - Congenital arterial malformation [Unknown]
  - Right ventricular dysfunction [Unknown]
  - Tricuspid valve incompetence [Unknown]
